FAERS Safety Report 6134965-7 (Version None)
Quarter: 2009Q1

REPORT INFORMATION
  Report Type: 
  Country: None (occurrence: None)
  Receive Date: 20090327
  Receipt Date: 20090316
  Transmission Date: 20090719
  Serious: Yes (Hospitalization)
  Sender: FDA-Public Use
  Company Number: EMADSS2002005699

PATIENT
  Sex: Male
  Weight: 72 kg

DRUGS (9)
  1. REMICADE [Suspect]
     Route: 041
     Dates: start: 20000224
  2. REMICADE [Suspect]
     Indication: RHEUMATOID ARTHRITIS
     Route: 041
     Dates: start: 20000224
  3. METHOTREXATE [Concomitant]
     Indication: DRUG USE FOR UNKNOWN INDICATION
     Route: 065
     Dates: start: 20020711
  4. DACORTIN [Concomitant]
     Indication: RHEUMATOID ARTHRITIS
     Route: 065
  5. FOLIC ACID [Concomitant]
     Indication: RHEUMATOID ARTHRITIS
     Route: 065
  6. EFFERALGAN [Concomitant]
     Indication: RHEUMATOID ARTHRITIS
     Route: 065
  7. TRAMADOL HCL [Concomitant]
     Indication: RHEUMATOID ARTHRITIS
     Route: 065
  8. OMEPRAZOLE [Concomitant]
     Indication: GASTROINTESTINAL DISORDER THERAPY
     Route: 065
  9. ACETAMINOPHEN [Concomitant]

REACTIONS (1)
  - ANGINA PECTORIS [None]
